FAERS Safety Report 8364444-8 (Version None)
Quarter: 2012Q2

REPORT INFORMATION
  Report Type: 
  Country: None (occurrence: None)
  Receive Date: 20120516
  Receipt Date: 20120502
  Transmission Date: 20120825
  Serious: Yes (Other)
  Sender: FDA-Public Use
  Company Number: US-UCBSA-054584

PATIENT
  Sex: Female
  Weight: 51.5 kg

DRUGS (9)
  1. ACETAMINOPHEN [Concomitant]
  2. LISINOPRIL [Concomitant]
     Dosage: UNKNOWN DOSE
  3. LOMOTIL [Concomitant]
     Dosage: UNKNOWN DOSE
  4. FERROUS SULFATE TAB [Concomitant]
     Dosage: UNKNOWN DOSE
  5. BENTYL [Concomitant]
     Dosage: UNKNOWN DOSE
  6. NEXIUM [Concomitant]
     Dosage: UNKNOWN DOSE
  7. VITAMIN [Concomitant]
     Dosage: UNKNOWN DOSE
  8. CIMZIA [Suspect]
     Indication: CROHN'S DISEASE
     Route: 058
     Dates: start: 20110519
  9. PHENERGAN [Concomitant]
     Dosage: UNKNOWN DOSE

REACTIONS (1)
  - HISTOPLASMOSIS DISSEMINATED [None]
